FAERS Safety Report 8436131 (Version 6)
Quarter: 2014Q1

REPORT INFORMATION
  Report Type: Spontaneous
  Country: US (occurrence: US)
  Receive Date: 20120301
  Receipt Date: 20140213
  Transmission Date: 20141002
  Serious: Yes (Hospitalization, Other)
  Sender: FDA-Public Use
  Company Number: US-ALLERGAN-1202687US

PATIENT
  Age: 32 Year
  Sex: Female

DRUGS (5)
  1. BOTOX COSMETIC [Suspect]
     Indication: SKIN WRINKLING
     Dosage: 28 UNITS, SINGLE
     Route: 030
     Dates: start: 20120214, end: 20120214
  2. BOTOX COSMETIC [Suspect]
     Indication: SKIN WRINKLING
     Dosage: 100 UNK, UNK
     Dates: start: 201111, end: 201111
  3. BOTOX COSMETIC [Suspect]
     Indication: MIGRAINE
  4. UNSPECIFIED HORMONES [Concomitant]
     Dosage: UNK
  5. SYNTHROID [Concomitant]
     Indication: HYPOTHYROIDISM
     Dosage: UNK

REACTIONS (25)
  - Loss of consciousness [Not Recovered/Not Resolved]
  - Convulsion [Recovering/Resolving]
  - Dyspnoea [Not Recovered/Not Resolved]
  - Hypersensitivity [Unknown]
  - Drug hypersensitivity [Unknown]
  - Antinuclear antibody positive [Not Recovered/Not Resolved]
  - Investigation abnormal [Unknown]
  - Throat tightness [Unknown]
  - Dry throat [Unknown]
  - Dyspnoea [Recovered/Resolved]
  - Drug intolerance [Unknown]
  - Bone disorder [Unknown]
  - Lipoma [Unknown]
  - Mass [Unknown]
  - Vocal cord paralysis [Unknown]
  - Sjogren^s syndrome [Unknown]
  - Influenza [Unknown]
  - Muscle spasms [Unknown]
  - Dysphonia [Unknown]
  - Vision blurred [Unknown]
  - Migraine [Unknown]
  - Headache [Unknown]
  - Hypoaesthesia [Unknown]
  - Pruritus [Unknown]
  - Neck pain [Not Recovered/Not Resolved]
